FAERS Safety Report 15845203 (Version 3)
Quarter: 2019Q1

REPORT INFORMATION
  Report Type: Report from Study
  Country: DE (occurrence: DE)
  Receive Date: 20190119
  Receipt Date: 20190221
  Transmission Date: 20190417
  Serious: Yes (Death, Hospitalization, Other)
  Sender: FDA-Public Use
  Company Number: DE-ACCORD-102805

PATIENT
  Age: 47 Year
  Sex: Male
  Weight: 125 kg

DRUGS (6)
  1. TILIDIN [Concomitant]
     Active Substance: NALOXONE HYDROCHLORIDE\TILIDINE HYDROCHLORIDE
     Dosage: DAILY DOSE: 100 MG MILLGRAM(S) EVERY DAYS
     Route: 048
     Dates: start: 20140303, end: 20140307
  2. OXALIPLATIN. [Concomitant]
     Active Substance: OXALIPLATIN
     Indication: COLON CANCER METASTATIC
     Dosage: DAILY DOSE: 170 MG MILLGRAM(S) EVERY 2 WEEKS
     Route: 042
     Dates: start: 20140114, end: 20140225
  3. FOLINIC ACID [Suspect]
     Active Substance: LEUCOVORIN
     Indication: COLON CANCER METASTATIC
     Dosage: DAILY DOSE: 800 MG MILLGRAM(S) EVERY 2 WEEKS
     Route: 042
     Dates: start: 20140114, end: 20140626
  4. IRINOTECAN [Concomitant]
     Active Substance: IRINOTECAN
     Indication: COLON CANCER METASTATIC
     Dosage: DAILY DOSE: 360 MG MILLGRAM(S) EVERY 2 WEEKS
     Route: 042
     Dates: start: 20140311, end: 20140626
  5. FLUOROURACIL. [Suspect]
     Active Substance: FLUOROURACIL
     Indication: COLON CANCER METASTATIC
     Dosage: DAILY DOSE: 6000 MG MILLGRAM(S) EVERY 2 WEEKS
     Route: 042
     Dates: start: 20140114, end: 20140626
  6. AVASTIN [Suspect]
     Active Substance: BEVACIZUMAB
     Indication: COLON CANCER METASTATIC
     Dosage: DAILY DOSE: 625 MG MILLGRAM(S) EVERY 2 WEEKS
     Route: 042
     Dates: start: 20140128, end: 20140715

REACTIONS (13)
  - Cardiac failure [Recovered/Resolved with Sequelae]
  - Jaundice [Unknown]
  - Deep vein thrombosis [Recovering/Resolving]
  - Pulmonary embolism [Recovered/Resolved]
  - International normalised ratio abnormal [Unknown]
  - Blood bilirubin abnormal [Unknown]
  - Blood creatinine abnormal [Unknown]
  - Renal failure [Fatal]
  - Back pain [Unknown]
  - Blood lactate dehydrogenase abnormal [Unknown]
  - Jaundice [Fatal]
  - Activated partial thromboplastin time abnormal [Unknown]
  - Aspartate aminotransferase abnormal [Unknown]

NARRATIVE: CASE EVENT DATE: 20140303
